FAERS Safety Report 5512254-9 (Version None)
Quarter: 2007Q4

REPORT INFORMATION
  Report Type: 
  Country: None (occurrence: None)
  Receive Date: 20071112
  Receipt Date: 20071012
  Transmission Date: 20080405
  Serious: No
  Sender: FDA-Public Use
  Company Number: A0668425A

PATIENT
  Age: 50 Year
  Sex: Female

DRUGS (1)
  1. VERAMYST [Suspect]
     Dosage: 2SPR PER DAY
     Route: 045
     Dates: start: 20070615, end: 20070701

REACTIONS (2)
  - CYST RUPTURE [None]
  - THYROID CYST [None]
